FAERS Safety Report 7733970 (Version 8)
Quarter: 2013Q3

REPORT INFORMATION
  Report Type: Spontaneous
  Country: US (occurrence: US)
  Receive Date: 20101223
  Receipt Date: 20130709
  Transmission Date: 20140515
  Serious: Yes (Hospitalization, Other)
  Sender: FDA-Public Use
  Company Number: US-ROCHE-728108

PATIENT
  Age: 40 Year
  Sex: Female
  Weight: 75.3 kg

DRUGS (6)
  1. ACCUTANE [Suspect]
     Indication: ACNE
     Route: 048
  2. ACCUTANE [Suspect]
     Route: 048
  3. PROZAC [Concomitant]
     Indication: DEPRESSION
  4. ADDERALL [Concomitant]
  5. WELLBUTRIN [Concomitant]
     Indication: DEPRESSION
  6. ORTHO TRI-CYCLEN [Concomitant]
     Indication: CONTRACEPTION
     Route: 065

REACTIONS (15)
  - Intestinal haemorrhage [Unknown]
  - Colitis ulcerative [Unknown]
  - Crohn^s disease [Unknown]
  - Irritable bowel syndrome [Unknown]
  - Inflammatory bowel disease [Unknown]
  - Intestinal obstruction [Unknown]
  - Depression [Unknown]
  - Sinusitis [Unknown]
  - Head injury [Unknown]
  - Dry skin [Unknown]
  - Osteopenia [Unknown]
  - Mass [Unknown]
  - Viral pharyngitis [Unknown]
  - Candida infection [Unknown]
  - Tachycardia [Recovered/Resolved]
